FAERS Safety Report 6771187-0 (Version None)
Quarter: 2010Q2

REPORT INFORMATION
  Report Type: 
  Country: None (occurrence: None)
  Receive Date: 20100616
  Receipt Date: 20100604
  Transmission Date: 20101027
  Serious: Yes (Other)
  Sender: FDA-Public Use
  Company Number: AU-WYE-G06226810

PATIENT
  Sex: Female

DRUGS (1)
  1. EFFEXOR XR [Suspect]
     Indication: DEPRESSION
     Dosage: COMMENCED WHEN 16 YEARS OLD, THEN WITHDRAWN 6 MONTHS AGO, THEN TAKING 300MG DAILY FOR THE PAST 4 MTH
     Dates: end: 20100530

REACTIONS (9)
  - APHASIA [None]
  - ASTHENIA [None]
  - BRADYPHRENIA [None]
  - DIZZINESS [None]
  - DRUG WITHDRAWAL SYNDROME [None]
  - INTENTIONAL DRUG MISUSE [None]
  - NAUSEA [None]
  - PANIC ATTACK [None]
  - PARAESTHESIA [None]
